FAERS Safety Report 5207376-6 (Version None)
Quarter: 2007Q1

REPORT INFORMATION
  Report Type: 
  Country: None (occurrence: None)
  Receive Date: 20070112
  Receipt Date: 20070105
  Transmission Date: 20070707
  Serious: Yes (Hospitalization)
  Sender: FDA-Public Use
  Company Number: AT-ELI_LILLY_AND_COMPANY-AT200611000498

PATIENT
  Age: 76 Year
  Sex: Male

DRUGS (12)
  1. TAZONAM [Concomitant]
     Dosage: UNK, UNKNOWN
  2. MUCOSOLVAN [Concomitant]
     Dosage: UNK, UNKNOWN
  3. METOGASTRON [Concomitant]
     Dosage: UNK, UNKNOWN
  4. SODIUM CHLORIDE [Concomitant]
     Dosage: UNK, UNKNOWN
     Route: 042
  5. POTASSIUM CHLORIDE [Concomitant]
     Dosage: UNK, UNKNOWN
     Route: 042
  6. SODIUM PHOSPHATE MONOBASIC [Concomitant]
     Dosage: UNK, UNKNOWN
     Route: 042
  7. MAGNESIUM CHLORIDE ANHYDROUS [Concomitant]
     Dosage: UNK, UNKNOWN
     Route: 042
  8. PANTOPRAZOLE SODIUM [Concomitant]
     Dosage: UNK, UNKNOWN
  9. NOVALGIN                                /SCH/ [Concomitant]
     Dosage: UNK, UNKNOWN
  10. TRADOLAN [Concomitant]
     Dosage: UNK, UNKNOWN
  11. ZYPREXA [Suspect]
     Dosage: 10 MG, DAILY (1/D)
     Route: 048
     Dates: start: 20060821, end: 20060825
  12. ZYPREXA [Suspect]
     Dosage: 5 MG, DAILY (1/D)
     Route: 048
     Dates: start: 20060701, end: 20060820

REACTIONS (3)
  - DELIRIUM [None]
  - FALL [None]
  - HYPERTONIA [None]
